FAERS Safety Report 19591745 (Version 2)
Quarter: 2021Q3

REPORT INFORMATION
  Report Type: Report from Study
  Country: US (occurrence: US)
  Receive Date: 20210721
  Receipt Date: 20210812
  Transmission Date: 20211014
  Serious: Yes (Death, Other)
  Sender: FDA-Public Use
  Company Number: US-TAKEDA-2021TUS044849

PATIENT
  Sex: Male

DRUGS (1)
  1. BRIGATINIB [Suspect]
     Active Substance: BRIGATINIB
     Indication: PANCREATIC CARCINOMA
     Dosage: 180 MILLIGRAM, QD
     Route: 065

REACTIONS (3)
  - Product dose omission issue [Unknown]
  - Death [Fatal]
  - Off label use [Unknown]
